FAERS Safety Report 5229016-2 (Version None)
Quarter: 2007Q1

REPORT INFORMATION
  Report Type: 
  Country: None (occurrence: None)
  Receive Date: 20061201
  Receipt Date: 20060914
  Transmission Date: 20070707
  Serious: No
  Sender: FDA-Public Use
  Company Number: US200609003360

PATIENT
  Sex: Female

DRUGS (1)
  1. CYMBALTA [Suspect]
     Dosage: 60 MG DAILY (1/D) UNK
     Dates: start: 20060907

REACTIONS (7)
  - AMNESIA [None]
  - ASTHENIA [None]
  - CONTUSION [None]
  - FALL [None]
  - FEELING ABNORMAL [None]
  - LIMB INJURY [None]
  - MALAISE [None]
